FAERS Safety Report 7208640-1 (Version None)
Quarter: 2011Q1

REPORT INFORMATION
  Report Type: 
  Country: None (occurrence: None)
  Receive Date: 20110104
  Receipt Date: 20101223
  Transmission Date: 20110831
  Serious: Yes (Hospitalization, Other)
  Sender: FDA-Public Use
  Company Number: DE-ROCHE-750866

PATIENT
  Sex: Female
  Weight: 56 kg

DRUGS (8)
  1. TRASTUZUMAB [Suspect]
     Route: 042
     Dates: start: 20100601, end: 20100701
  2. TRASTUZUMAB [Suspect]
     Route: 042
     Dates: start: 20100930
  3. DEXAMETHASON [Suspect]
     Route: 042
     Dates: start: 20100930, end: 20101001
  4. DOCETAXEL [Suspect]
     Route: 042
     Dates: start: 20100601
  5. ONDANSETRON [Concomitant]
     Indication: ANTIEMETIC SUPPORTIVE CARE
     Route: 042
     Dates: start: 20100930
  6. CARBOPLATIN [Suspect]
     Indication: BREAST CANCER
     Route: 065
     Dates: start: 20100601, end: 20100701
  7. TAVEGIL [Concomitant]
     Route: 042
     Dates: start: 20100930
  8. EPIRUBICIN [Concomitant]
     Dates: start: 20100701

REACTIONS (5)
  - RENAL FAILURE [None]
  - COLITIS [None]
  - BRONCHOPNEUMONIA [None]
  - ANAEMIA [None]
  - FEBRILE NEUTROPENIA [None]
